FAERS Safety Report 16426595 (Version 1)
Quarter: 2019Q3

REPORT INFORMATION
  Report Type: Spontaneous
  Country: US (occurrence: US)
  Receive Date: 20190612
  Receipt Date: 20190612
  Transmission Date: 20191004
  Serious: Yes (Hospitalization)
  Sender: FDA-Public Use
  Company Number: None

PATIENT
  Age: 47 Year
  Sex: Female

DRUGS (7)
  1. LEVOCETIRIZINE 5MG [Concomitant]
     Active Substance: LEVOCETIRIZINE
  2. PROAIR HFA [Concomitant]
     Active Substance: ALBUTEROL SULFATE
  3. METOPROLO 25MG [Concomitant]
  4. DULOXETINE 60 MG [Concomitant]
     Active Substance: DULOXETINE
  5. XELJANZ XR [Suspect]
     Active Substance: TOFACITINIB CITRATE
     Indication: RHEUMATOID ARTHRITIS
     Route: 048
  6. NABUMETONE. [Concomitant]
     Active Substance: NABUMETONE
  7. AZELASTINE 0.15% SPRAY [Concomitant]

REACTIONS (3)
  - Bronchitis [None]
  - Product dose omission [None]
  - Colitis [None]
